FAERS Safety Report 5837159-5 (Version None)
Quarter: 2008Q3

REPORT INFORMATION
  Report Type: 
  Country: None (occurrence: None)
  Receive Date: 20080807
  Receipt Date: 20080804
  Transmission Date: 20090109
  Serious: Yes (Other)
  Sender: FDA-Public Use
  Company Number: US-JNJCH-2008020292

PATIENT
  Age: 43 Year
  Sex: Male
  Weight: 95.3 kg

DRUGS (3)
  1. SUDAFED PE SEVERE COLD CAPLET [Suspect]
     Indication: COUGH
     Dosage: TEXT:2 TABLETS ONCE DAILY
     Route: 048
     Dates: start: 20080803, end: 20080804
  2. BENADRYL CREAM EXTRA STRENGTH [Suspect]
     Indication: URTICARIA
     Dosage: TEXT:UNSPECIFIED
     Route: 061
  3. DRUG, UNSPECIFIED [Concomitant]
     Indication: GASTROOESOPHAGEAL REFLUX DISEASE
     Dosage: TEXT:1 PILL/1X PER DAY
     Route: 048

REACTIONS (7)
  - BURNING SENSATION [None]
  - HYPERHIDROSIS [None]
  - LOCAL SWELLING [None]
  - MEDICATION ERROR [None]
  - SWELLING [None]
  - SWELLING FACE [None]
  - URTICARIA [None]
